FAERS Safety Report 6057000-8 (Version None)
Quarter: 2009Q1

REPORT INFORMATION
  Report Type: 
  Country: None (occurrence: None)
  Receive Date: 20090129
  Receipt Date: 20090121
  Transmission Date: 20090719
  Serious: Yes (Hospitalization)
  Sender: FDA-Public Use
  Company Number: DE-AMGEN-US329759

PATIENT
  Age: 14 Year
  Sex: Female

DRUGS (4)
  1. ENBREL [Suspect]
     Indication: JUVENILE ARTHRITIS
     Route: 058
     Dates: start: 20081201
  2. PREDNISOLONE [Concomitant]
     Dosage: 30 MG, FREQUENCY UNKNOWN
     Route: 065
  3. LANTAREL [Concomitant]
     Dosage: 25 MG, FREQUENCY UNKNOWN
     Route: 065
  4. NAPROXEN [Concomitant]
     Dosage: DOSE UNKNOWN, 2 TIMES PER DAY
     Route: 048

REACTIONS (2)
  - HISTIOCYTOSIS HAEMATOPHAGIC [None]
  - UPPER RESPIRATORY TRACT INFECTION [None]
